FAERS Safety Report 11685644 (Version 1)
Quarter: 2015Q4

REPORT INFORMATION
  Report Type: Spontaneous
  Country: AU (occurrence: AU)
  Receive Date: 20151030
  Receipt Date: 20151030
  Transmission Date: 20160304
  Serious: Yes (Other)
  Sender: FDA-Public Use
  Company Number: AU-WATSON-2015-19641

PATIENT
  Age: 62 Year
  Sex: Male

DRUGS (4)
  1. CYCLOPHOSPHAMIDE (UNKNOWN) [Suspect]
     Active Substance: CYCLOPHOSPHAMIDE
     Indication: FOCAL SEGMENTAL GLOMERULOSCLEROSIS
     Dosage: HIGH DOSE ALTERNATE DAY
     Route: 065
  2. CYCLOSPORINE (UNKNOWN) [Suspect]
     Active Substance: CYCLOSPORINE
     Indication: PROTEINURIA
     Dosage: UNK
     Route: 065
  3. PREDNISOLONE (WATSON LABORATORIES) [Suspect]
     Active Substance: PREDNISOLONE
     Dosage: 3 MONTH TAPERING COURSE
     Route: 048
  4. PREDNISOLONE (WATSON LABORATORIES) [Suspect]
     Active Substance: PREDNISOLONE
     Dosage: SIX MONTH REGIMEN OF HIGH DOSE ALTERNATE DAY

REACTIONS (3)
  - Blood creatinine increased [Not Recovered/Not Resolved]
  - Drug resistance [Unknown]
  - Drug intolerance [Unknown]
